FAERS Safety Report 25600679 (Version 1)
Quarter: 2025Q3

REPORT INFORMATION
  Report Type: Spontaneous
  Country: US (occurrence: None)
  Receive Date: 20250724
  Receipt Date: 20250724
  Transmission Date: 20251021
  Serious: Yes (Hospitalization)
  Sender: FDA-CTU
  Company Number: None

PATIENT
  Age: 45 Year
  Sex: Female
  Weight: 104.3 kg

DRUGS (2)
  1. XELODA [Suspect]
     Active Substance: CAPECITABINE
     Dates: end: 20250714
  2. ELOXATIN [Suspect]
     Active Substance: OXALIPLATIN
     Dates: end: 20250708

REACTIONS (12)
  - Diarrhoea [None]
  - Dysaesthesia [None]
  - Abdominal pain upper [None]
  - Pain [None]
  - Therapy interrupted [None]
  - Pulmonary embolism [None]
  - Right ventricular dysfunction [None]
  - Eructation [None]
  - Sinus tachycardia [None]
  - Lung opacity [None]
  - Atelectasis [None]
  - Pneumonia [None]

NARRATIVE: CASE EVENT DATE: 20250714
